FAERS Safety Report 6215016-2 (Version None)
Quarter: 2009Q2

REPORT INFORMATION
  Report Type: 
  Country: None (occurrence: None)
  Receive Date: 20090604
  Receipt Date: 20080903
  Transmission Date: 20091009
  Serious: No
  Sender: FDA-Public Use
  Company Number: US-ASTRAZENECA-2008UW17975

PATIENT
  Age: 53 Year
  Sex: Male

DRUGS (6)
  1. PRILOSEC [Suspect]
     Indication: DUODENAL ULCER
     Route: 048
     Dates: start: 20080701, end: 20080701
  2. HYDROCODONE BITARTRATE [Suspect]
     Indication: PAIN
     Dates: start: 20070101
  3. PROTONIX [Suspect]
     Indication: DUODENAL ULCER
     Route: 048
  4. PEPCID AC [Suspect]
     Indication: DUODENAL ULCER
     Route: 048
  5. MAALOX [Suspect]
     Indication: DUODENAL ULCER
     Route: 048
  6. ASPIRIN [Suspect]
     Indication: DUODENAL ULCER
     Route: 048

REACTIONS (4)
  - DYSURIA [None]
  - GROIN PAIN [None]
  - PROSTATIC SPECIFIC ANTIGEN INCREASED [None]
  - TESTICULAR SWELLING [None]
